FAERS Safety Report 8350758-4 (Version None)
Quarter: 2012Q2

REPORT INFORMATION
  Report Type: 
  Country: None (occurrence: None)
  Receive Date: 20120510
  Receipt Date: 20120503
  Transmission Date: 20120825
  Serious: Yes (Congenital Anomaly)
  Sender: FDA-Public Use
  Company Number: US-GLAXOSMITHKLINE-A0976968A

PATIENT
  Sex: Female
  Weight: 4 kg

DRUGS (5)
  1. TRILEPTAL [Concomitant]
  2. PROZAC [Concomitant]
     Dates: start: 20030601
  3. MULTI-VITAMINS [Concomitant]
  4. IRON [Concomitant]
  5. PAXIL [Suspect]
     Indication: PRODUCT USED FOR UNKNOWN INDICATION
     Route: 064
     Dates: end: 20030601

REACTIONS (5)
  - FOETAL EXPOSURE DURING PREGNANCY [None]
  - MATERNAL DRUGS AFFECTING FOETUS [None]
  - PATENT DUCTUS ARTERIOSUS [None]
  - ATRIAL SEPTAL DEFECT [None]
  - VENTRICULAR SEPTAL DEFECT [None]
